FAERS Safety Report 8951653 (Version 1)
Quarter: 2012Q4

REPORT INFORMATION
  Report Type: 
  Country: FR (occurrence: FR)
  Receive Date: 20121204
  Receipt Date: 20121204
  Transmission Date: 20130627
  Serious: Yes (Hospitalization)
  Sender: FDA-Public Use
  Company Number: FR-VERTEX PHARMACEUTICALS INC.-2012-025589

PATIENT
  Age: 54 Year
  Sex: Male

DRUGS (5)
  1. INCIVO [Suspect]
     Indication: CHRONIC HEPATITIS C
     Dosage: UNK
     Route: 065
  2. RIBAVIRINE [Suspect]
     Indication: CHRONIC HEPATITIS C
     Dosage: UNK
     Route: 065
  3. RIBAVIRINE [Suspect]
     Dosage: UNK
     Route: 065
  4. INTERFERON [Suspect]
     Indication: CHRONIC HEPATITIS C
     Dosage: UNK
     Route: 065
  5. INTERFERON [Suspect]
     Dosage: UNK
     Route: 065

REACTIONS (1)
  - Histiocytosis haematophagic [Recovered/Resolved]
